FAERS Safety Report 6886990-6 (Version None)
Quarter: 2010Q3

REPORT INFORMATION
  Report Type: 
  Country: None (occurrence: None)
  Receive Date: 20100730
  Receipt Date: 20100721
  Transmission Date: 20110219
  Serious: Yes (Hospitalization)
  Sender: FDA-Public Use
  Company Number: FR-CELGENEUS-056-C5013-10071928

PATIENT
  Sex: Female
  Weight: 56 kg

DRUGS (7)
  1. THALIDOMIDE [Suspect]
     Indication: MULTIPLE MYELOMA
     Route: 048
     Dates: start: 20100202
  2. THALIDOMIDE [Suspect]
     Route: 048
     Dates: start: 20100609
  3. MELPHALAN [Suspect]
     Indication: MULTIPLE MYELOMA
     Route: 065
     Dates: start: 20100202
  4. MELPHALAN [Suspect]
     Route: 065
     Dates: start: 20100609, end: 20100612
  5. PREDNISONE [Suspect]
     Indication: MULTIPLE MYELOMA
     Route: 065
     Dates: start: 20100202
  6. PREDNISONE [Suspect]
     Route: 065
     Dates: start: 20100609, end: 20100612
  7. LOVENOX [Concomitant]
     Indication: THROMBOSIS PROPHYLAXIS
     Route: 058
     Dates: start: 20100716

REACTIONS (1)
  - DECUBITUS ULCER [None]
